FAERS Safety Report 6266925-X (Version None)
Quarter: 2009Q3

REPORT INFORMATION
  Report Type: 
  Country: None (occurrence: None)
  Receive Date: 20090710
  Receipt Date: 20090710
  Transmission Date: 20100115
  Serious: Yes (Other)
  Sender: FDA-Public Use
  Company Number: None

PATIENT
  Age: 61 Year
  Sex: Male
  Weight: 103 kg

DRUGS (7)
  1. PEGASYS [Suspect]
     Indication: HEPATITIS C
     Dates: start: 20090623, end: 20090702
  2. RIBAVIRIN [Suspect]
     Indication: HEPATITIS C
     Dates: start: 20090623, end: 20090702
  3. LEXAPRO [Concomitant]
  4. MOBIC [Concomitant]
  5. XYZAL [Concomitant]
  6. ZANTAC [Concomitant]
  7. LORTAB [Concomitant]

REACTIONS (3)
  - ANAEMIA [None]
  - CELLULITIS [None]
  - NEUTROPENIA [None]
